FAERS Safety Report 6265966-6 (Version None)
Quarter: 2009Q3

REPORT INFORMATION
  Report Type: 
  Country: None (occurrence: None)
  Receive Date: 20090713
  Receipt Date: 20090702
  Transmission Date: 20100115
  Serious: Yes (Hospitalization)
  Sender: FDA-Public Use
  Company Number: US-KINGPHARMUSA00001-K200900751

PATIENT
  Age: 81 Year
  Sex: Male

DRUGS (1)
  1. SYNERCID [Suspect]
     Indication: ENTEROCOCCAL INFECTION
     Dosage: 500 MG, QID
     Route: 042
     Dates: start: 20090616, end: 20090621

REACTIONS (8)
  - INFUSION SITE EXFOLIATION [None]
  - INFUSION SITE EXTRAVASATION [None]
  - INFUSION SITE OEDEMA [None]
  - INFUSION SITE PAIN [None]
  - INFUSION SITE REACTION [None]
  - INFUSION SITE ULCER [None]
  - INFUSION SITE VESICLES [None]
  - SYSTEMIC CANDIDA [None]
